FAERS Safety Report 18064969 (Version 2)
Quarter: 2020Q3

REPORT INFORMATION
  Report Type: Spontaneous
  Country: US (occurrence: US)
  Receive Date: 20200724
  Receipt Date: 20200729
  Transmission Date: 20201103
  Serious: Yes (Other)
  Sender: FDA-Public Use
  Company Number: US-NOVEN PHARMACEUTICALS, INC.-2020US003810

PATIENT
  Sex: Female
  Weight: 62.59 kg

DRUGS (2)
  1. AGX ESTRADIOL FOR MINIVELLE [Suspect]
     Active Substance: ESTRADIOL
     Indication: OFF LABEL USE
  2. AGX ESTRADIOL FOR MINIVELLE [Suspect]
     Active Substance: ESTRADIOL
     Indication: MENOPAUSAL SYMPTOMS PROPHYLAXIS
     Dosage: 0.05 MG, 2/WEEK
     Route: 062
     Dates: start: 201901, end: 20200515

REACTIONS (3)
  - Application site dermatitis [Unknown]
  - Off label use [Recovered/Resolved]
  - Dermatitis allergic [Unknown]

NARRATIVE: CASE EVENT DATE: 2019
